FAERS Safety Report 5203401-7 (Version None)
Quarter: 2007Q1

REPORT INFORMATION
  Report Type: 
  Country: None (occurrence: None)
  Receive Date: 20070105
  Receipt Date: 20061122
  Transmission Date: 20070707
  Serious: Yes (Other)
  Sender: FDA-Public Use
  Company Number: DAV-AE-MTX-06-003

PATIENT
  Age: 52 Year
  Sex: Female

DRUGS (2)
  1. METHOTREXATE [Suspect]
     Indication: PSORIASIS
     Dosage: 15MG WEEKLY - PO
     Route: 048
     Dates: start: 20060701
  2. HORMONE REPLACEMENT THERAPY [Concomitant]

REACTIONS (2)
  - VAGINAL ULCERATION [None]
  - VULVAL ULCERATION [None]
